FAERS Safety Report 11595257 (Version 2)
Quarter: 2015Q4

REPORT INFORMATION
  Report Type: Spontaneous
  Country: US (occurrence: US)
  Receive Date: 20151006
  Receipt Date: 20151130
  Transmission Date: 20160304
  Serious: Yes (Other)
  Sender: FDA-Public Use
  Company Number: US-PAR PHARMACEUTICAL COMPANIES-2015SCPR014329

PATIENT

DRUGS (3)
  1. PROPAFENONE HCL ER [Suspect]
     Active Substance: PROPAFENONE
     Indication: ATRIAL FIBRILLATION
     Dosage: 1 DF, OD, IN THE EVENING
     Route: 048
     Dates: start: 20150813, end: 20150922
  2. PROPAFENONE HCL ER [Suspect]
     Active Substance: PROPAFENONE
     Dosage: 1 DF, OD, IN THE EVENING
     Route: 048
     Dates: start: 20120130, end: 201508
  3. RYTHMOL [Concomitant]
     Active Substance: PROPAFENONE HYDROCHLORIDE
     Indication: PRODUCT USED FOR UNKNOWN INDICATION
     Dosage: 1 DF, OD, IN THE MORNING
     Route: 065

REACTIONS (5)
  - Heart rate increased [Recovered/Resolved]
  - Anxiety [Recovered/Resolved]
  - Conduction disorder [Unknown]
  - Paraesthesia [Recovered/Resolved]
  - Feeling abnormal [Recovered/Resolved]

NARRATIVE: CASE EVENT DATE: 20150814
